FAERS Safety Report 6115377-9 (Version None)
Quarter: 2009Q1

REPORT INFORMATION
  Report Type: 
  Country: None (occurrence: None)
  Receive Date: 20090313
  Receipt Date: 20090309
  Transmission Date: 20090719
  Serious: Yes (Death)
  Sender: FDA-Public Use
  Company Number: PHHY2009CN08601

PATIENT
  Age: 49 Year
  Sex: Female

DRUGS (5)
  1. IMATINIB MESYLATE [Suspect]
     Dosage: 400 MG/ DAY
  2. IMATINIB MESYLATE [Suspect]
     Dosage: 600 MG/ DAY
  3. CYCLOSPORINE [Concomitant]
  4. MYCOPHENOLATE MOFETIL [Concomitant]
  5. METHOTREXATE [Concomitant]

REACTIONS (1)
  - INTERSTITIAL LUNG DISEASE [None]
